FAERS Safety Report 24049567 (Version 1)
Quarter: 2024Q3

REPORT INFORMATION
  Report Type: Spontaneous
  Country: ES (occurrence: ES)
  Receive Date: 20240704
  Receipt Date: 20240704
  Transmission Date: 20241016
  Serious: Yes (Other)
  Sender: TEVA
  Company Number: None

PATIENT
  Age: 85 Year
  Sex: Female

DRUGS (1)
  1. LEVOFLOXACIN [Suspect]
     Active Substance: LEVOFLOXACIN
     Indication: Pyrexia
     Dosage: 1:  7 TABLETS
     Route: 048
     Dates: start: 20240531, end: 202406

REACTIONS (1)
  - Muscle rupture [Recovered/Resolved]

NARRATIVE: CASE EVENT DATE: 20240602
